FAERS Safety Report 6706063-2 (Version None)
Quarter: 2010Q2

REPORT INFORMATION
  Report Type: 
  Country: None (occurrence: None)
  Receive Date: 20100503
  Receipt Date: 20100422
  Transmission Date: 20101027
  Serious: No
  Sender: FDA-Public Use
  Company Number: US-B.I. PHARMACEUTICALS,INC./RIDGEFIELD-2009-BP-02256BP

PATIENT
  Sex: Male

DRUGS (8)
  1. SPIRIVA [Suspect]
     Indication: CHRONIC OBSTRUCTIVE PULMONARY DISEASE
     Dosage: 18 MCG
     Route: 055
     Dates: start: 20081001, end: 20100201
  2. SPIRIVA [Suspect]
     Dosage: 18 MCG
     Route: 055
     Dates: start: 20100401
  3. COUMADIN [Concomitant]
     Indication: STENT PLACEMENT
  4. COUMADIN [Concomitant]
     Indication: CARDIAC DISORDER
  5. LIPITOR [Concomitant]
     Indication: BLOOD CHOLESTEROL INCREASED
  6. FLOMAX [Concomitant]
     Indication: PROSTATOMEGALY
  7. FINASTERIDE [Concomitant]
     Indication: PROSTATOMEGALY
  8. ASPIRIN [Concomitant]
     Indication: STENT PLACEMENT

REACTIONS (6)
  - COUGH [None]
  - DIZZINESS [None]
  - DYSPNOEA EXERTIONAL [None]
  - RASH ERYTHEMATOUS [None]
  - RASH PRURITIC [None]
  - VISION BLURRED [None]
